FAERS Safety Report 25976998 (Version 1)
Quarter: 2025Q4

REPORT INFORMATION
  Report Type: Spontaneous
  Country: US (occurrence: US)
  Receive Date: 20251030
  Receipt Date: 20251030
  Transmission Date: 20260118
  Serious: No
  Sender: GALDERMA
  Company Number: US-GALDERMA-US2025019907

PATIENT

DRUGS (1)
  1. NEMLUVIO [Suspect]
     Active Substance: NEMOLIZUMAB-ILTO
     Indication: Neurodermatitis
     Dosage: UNK
     Route: 058

REACTIONS (4)
  - Blister [Not Recovered/Not Resolved]
  - Scar [Not Recovered/Not Resolved]
  - Scab [Not Recovered/Not Resolved]
  - Drug ineffective [Not Recovered/Not Resolved]
